FAERS Safety Report 16055951 (Version 1)
Quarter: 2019Q1

REPORT INFORMATION
  Report Type: Spontaneous
  Country: BR (occurrence: BR)
  Receive Date: 20190311
  Receipt Date: 20190311
  Transmission Date: 20190418
  Serious: Yes (Other)
  Sender: FDA-Public Use
  Company Number: BR-SA-2018SA396847

PATIENT
  Age: 31 Year
  Sex: Male
  Weight: 60 kg

DRUGS (2)
  1. FABRAZYME [Suspect]
     Active Substance: AGALSIDASE BETA
     Indication: FABRY^S DISEASE
     Dosage: 1 MG/KG, QOW
     Route: 041
  2. FABRAZYME [Suspect]
     Active Substance: AGALSIDASE BETA
     Dosage: 60 MG, QOW
     Route: 041
     Dates: start: 20180830, end: 2019

REACTIONS (5)
  - Neurological symptom [Recovering/Resolving]
  - Burning sensation [Recovering/Resolving]
  - End stage renal disease [Unknown]
  - Fatigue [Recovering/Resolving]
  - Pain [Recovering/Resolving]
